FAERS Safety Report 13471787 (Version 1)
Quarter: 2017Q2

REPORT INFORMATION
  Report Type: Spontaneous
  Country: US (occurrence: US)
  Receive Date: 20170424
  Receipt Date: 20170424
  Transmission Date: 20170830
  Serious: No
  Sender: FDA-Public Use
  Company Number: US-PFIZER INC-2017175228

PATIENT
  Age: 43 Year
  Sex: Female
  Weight: 154 kg

DRUGS (1)
  1. GENOTROPIN [Suspect]
     Active Substance: SOMATROPIN

REACTIONS (2)
  - Injury [Not Recovered/Not Resolved]
  - Accidental exposure to product [Not Recovered/Not Resolved]
